FAERS Safety Report 11509276 (Version 1)
Quarter: 2015Q3

REPORT INFORMATION
  Report Type: Spontaneous
  Country: US (occurrence: US)
  Receive Date: 20150915
  Receipt Date: 20150915
  Transmission Date: 20151125
  Serious: No
  Sender: FDA-Public Use
  Company Number: US-B.I. PHARMACEUTICALS,INC./RIDGEFIELD-2015-BI-48452BP

PATIENT
  Age: 71 Year
  Sex: Male
  Weight: 52 kg

DRUGS (7)
  1. LEVOBUTEROL [Concomitant]
     Indication: EMPHYSEMA
     Dosage: STRENGTH: 1.25 MG
     Route: 055
     Dates: start: 201503
  2. DALIRESP [Concomitant]
     Active Substance: ROFLUMILAST
     Indication: EMPHYSEMA
     Dosage: 500 MCG
     Route: 048
     Dates: start: 201503
  3. BREO ELIPTA [Concomitant]
     Indication: EMPHYSEMA
     Dosage: 100 MCG
     Route: 055
     Dates: start: 201507
  4. DOXAZOSIN [Concomitant]
     Active Substance: DOXAZOSIN\DOXAZOSIN MESYLATE
     Indication: PROSTATIC DISORDER
     Dosage: 4 MG
     Route: 048
     Dates: start: 2010
  5. SPIRIVA [Suspect]
     Active Substance: TIOTROPIUM BROMIDE MONOHYDRATE
     Indication: EMPHYSEMA
     Dosage: 5 MCG
     Route: 055
     Dates: start: 201507, end: 20150827
  6. ACYCLOVIR. [Concomitant]
     Active Substance: ACYCLOVIR
     Indication: ANTIVIRAL TREATMENT
     Dosage: 400 MG
     Route: 048
     Dates: start: 2008
  7. ALONDRONATE [Concomitant]
     Indication: OSTEOPOROSIS
     Route: 048
     Dates: start: 2014

REACTIONS (2)
  - Cough [Recovered/Resolved]
  - Overdose [Recovered/Resolved]

NARRATIVE: CASE EVENT DATE: 201507
